FAERS Safety Report 9820249 (Version 1)
Quarter: 2013Q4

REPORT INFORMATION
  Report Type: Spontaneous
  Country: US (occurrence: None)
  Receive Date: 20131223
  Receipt Date: 20131223
  Transmission Date: 20140711
  Serious: No
  Sender: FDA-Public Use
  Company Number: 221124

PATIENT
  Age: 60 Year
  Sex: Female

DRUGS (5)
  1. PICATO [Suspect]
     Indication: ACTINIC KERATOSIS
     Route: 061
     Dates: start: 20130329, end: 20130331
  2. LUNESTA (ESZOPICLONE) [Concomitant]
  3. MVI [Concomitant]
  4. CALCIUM [Concomitant]
  5. BIOTIN [Concomitant]

REACTIONS (4)
  - Application site erythema [None]
  - Application site swelling [None]
  - Application site pain [None]
  - Application site pruritus [None]
